FAERS Safety Report 4738396-3 (Version None)
Quarter: 2005Q3

REPORT INFORMATION
  Report Type: 
  Country: None (occurrence: None)
  Receive Date: 20050809
  Receipt Date: 20050627
  Transmission Date: 20060218
  Serious: Yes (Other)
  Sender: FDA-Public Use
  Company Number: GB-GLAXOSMITHKLINE-B0385761A

PATIENT
  Age: 40 Year
  Sex: Male
  Weight: 98 kg

DRUGS (4)
  1. LAMICTAL [Suspect]
     Route: 048
     Dates: start: 20050513, end: 20050627
  2. CLOZAPINE [Concomitant]
     Indication: SCHIZOPHRENIA
     Dosage: 250MG PER DAY
     Route: 048
     Dates: start: 20000901
  3. VENLAFAXINE [Concomitant]
     Indication: DEPRESSION
     Dosage: 75MG PER DAY
     Route: 048
     Dates: start: 20010801
  4. SULPIRIDE [Concomitant]
     Indication: SCHIZOPHRENIA
     Dosage: 400MG PER DAY
     Route: 048
     Dates: start: 20040101

REACTIONS (2)
  - OTORRHOEA [None]
  - SKIN LESION [None]
